FAERS Safety Report 5751148-0 (Version None)
Quarter: 2008Q2

REPORT INFORMATION
  Report Type: 
  Country: None (occurrence: None)
  Receive Date: 20080528
  Receipt Date: 20080516
  Transmission Date: 20081010
  Serious: No
  Sender: FDA-Public Use
  Company Number: BR-PFIZER INC-2008039453

PATIENT
  Sex: Female
  Weight: 65 kg

DRUGS (3)
  1. DEPO-PROVERA SUSPENSION/INJ [Suspect]
     Indication: OFF LABEL USE
     Dates: start: 20020101, end: 20020101
  2. DEPO-PROVERA SUSPENSION/INJ [Suspect]
     Indication: MENSTRUATION IRREGULAR
     Dates: start: 20071101, end: 20071101
  3. DEPO-PROVERA SUSPENSION/INJ [Suspect]
     Indication: DYSMENORRHOEA

REACTIONS (2)
  - DRUG INEFFECTIVE FOR UNAPPROVED INDICATION [None]
  - WEIGHT INCREASED [None]
